FAERS Safety Report 8978620 (Version 1)
Quarter: 2012Q4

REPORT INFORMATION
  Report Type: 
  Country: US (occurrence: US)
  Receive Date: 20121220
  Receipt Date: 20121220
  Transmission Date: 20130627
  Serious: Yes (Hospitalization, Other)
  Sender: FDA-Public Use
  Company Number: US-WATSON-2012-22192

PATIENT
  Age: 20 Year
  Sex: Female
  Weight: 60 kg

DRUGS (3)
  1. ZARAH [Suspect]
     Indication: ORAL CONTRACEPTION
     Dosage: UNK
     Route: 048
     Dates: start: 20110518, end: 20110806
  2. XOPENEX [Concomitant]
     Indication: ASTHMA
     Dosage: UNK, unknown
     Route: 065
  3. SYMBICORT [Concomitant]
     Indication: ASTHMA
     Dosage: UNK, unknown
     Route: 065

REACTIONS (10)
  - Pulmonary embolism [None]
  - Deep vein thrombosis [Recovering/Resolving]
  - Dyspnoea [Recovering/Resolving]
  - Musculoskeletal chest pain [Unknown]
  - Paraesthesia [Unknown]
  - Oedema peripheral [Unknown]
  - Fatigue [Unknown]
  - Feeling abnormal [Recovering/Resolving]
  - Confusional state [Recovering/Resolving]
  - Gait disturbance [Recovering/Resolving]
